FAERS Safety Report 4443582-6 (Version None)
Quarter: 2004Q3

REPORT INFORMATION
  Report Type: 
  Country: None (occurrence: None)
  Receive Date: 20040903
  Receipt Date: 20040903
  Transmission Date: 20050211
  Serious: Yes (Disabling)
  Sender: FDA-Public Use
  Company Number: None

PATIENT
  Sex: Female
  Weight: 60.3284 kg

DRUGS (3)
  1. ZETIA [Suspect]
     Indication: BLOOD CHOLESTEROL
     Dosage: 10 MG ONE DAILY
     Dates: start: 20040101, end: 20040501
  2. THYROID MED [Concomitant]
  3. BLOOD PRESSURE MED [Concomitant]

REACTIONS (4)
  - DIFFICULTY IN WALKING [None]
  - MUSCLE CRAMP [None]
  - MUSCULOSKELETAL STIFFNESS [None]
  - PAIN [None]
